FAERS Safety Report 9901205 (Version 2)
Quarter: 2014Q1

REPORT INFORMATION
  Report Type: Spontaneous
  Country: CA (occurrence: CA)
  Receive Date: 20140217
  Receipt Date: 20140228
  Transmission Date: 20141002
  Serious: Yes (Other)
  Sender: FDA-Public Use
  Company Number: CA-AMGEN-CANSP2014009999

PATIENT
  Age: 72 Year
  Sex: Female

DRUGS (1)
  1. XGEVA [Suspect]
     Indication: LUNG DISORDER
     Dosage: 120 MG, UNK
     Route: 065
     Dates: start: 20130618

REACTIONS (2)
  - Neoplasm malignant [Unknown]
  - Pulmonary thrombosis [Not Recovered/Not Resolved]
